FAERS Safety Report 15150306 (Version 1)
Quarter: 2018Q3

REPORT INFORMATION
  Report Type: Spontaneous
  Country: US (occurrence: US)
  Receive Date: 20180619
  Receipt Date: 20180619
  Transmission Date: 20181010
  Serious: Yes (Other)
  Sender: FDA-Public Use
  Company Number: None

PATIENT
  Age: 75 Year
  Sex: Female
  Weight: 90.72 kg

DRUGS (6)
  1. FOLIC ACID. [Concomitant]
     Active Substance: FOLIC ACID
  2. VITAMIN B12 [Concomitant]
     Active Substance: CYANOCOBALAMIN
  3. METOPROLOL. [Concomitant]
     Active Substance: METOPROLOL
  4. JANTOVEN [Concomitant]
     Active Substance: WARFARIN SODIUM
  5. XIIDRA [Suspect]
     Active Substance: LIFITEGRAST
     Indication: DRY EYE
     Dosage: ?          QUANTITY:1 GTT DROP(S);?
     Route: 047
     Dates: start: 20180109, end: 20180214
  6. B6 [Concomitant]
     Active Substance: PYRIDOXINE HYDROCHLORIDE

REACTIONS (3)
  - Eye irritation [None]
  - Dental caries [None]
  - Dysgeusia [None]

NARRATIVE: CASE EVENT DATE: 20180301
